FAERS Safety Report 4522729-7 (Version None)
Quarter: 2004Q4

REPORT INFORMATION
  Report Type: 
  Country: None (occurrence: None)
  Receive Date: 20041207
  Receipt Date: 20041125
  Transmission Date: 20050328
  Serious: Yes (Life-Threatening)
  Sender: FDA-Public Use
  Company Number: 2004100162

PATIENT
  Age: 47 Year
  Sex: Male
  Weight: 171 kg

DRUGS (3)
  1. IRINOTECAN HCL [Suspect]
     Indication: ILL-DEFINED DISORDER
     Dosage: INTRAVENOUS
     Route: 042
     Dates: start: 20040316, end: 20040824
  2. OXALIPLATIN (OXALIPLATIN) [Suspect]
     Indication: ILL-DEFINED DISORDER
     Dosage: INTRAVENOUS
     Route: 042
     Dates: start: 20010515, end: 20040102
  3. CETUXIMAB (CETUXIMAB) [Suspect]
     Indication: ILL-DEFINED DISORDER
     Dosage: INTRAVENOUS
     Route: 042
     Dates: start: 20040316, end: 20040824

REACTIONS (8)
  - ASCITES [None]
  - HAEMATEMESIS [None]
  - HEPATIC FIBROSIS [None]
  - METASTASES TO LIVER [None]
  - MYOCARDIAL ISCHAEMIA [None]
  - OESOPHAGEAL VARICES HAEMORRHAGE [None]
  - PORTAL HYPERTENSION [None]
  - VENOOCCLUSIVE LIVER DISEASE [None]
